FAERS Safety Report 14208054 (Version 1)
Quarter: 2017Q4

REPORT INFORMATION
  Report Type: Spontaneous
  Country: US (occurrence: US)
  Receive Date: 20171120
  Receipt Date: 20171120
  Transmission Date: 20180321
  Serious: Yes (Other)
  Sender: FDA-Public Use
  Company Number: None

PATIENT
  Sex: Female

DRUGS (1)
  1. TIMOLOL MALEATE. [Suspect]
     Active Substance: TIMOLOL MALEATE
     Indication: GLAUCOMA
     Dosage: ?          QUANTITY:1 DROP(S);?
     Route: 047

REACTIONS (6)
  - Loss of consciousness [None]
  - Feeling abnormal [None]
  - Dizziness [None]
  - Head injury [None]
  - Hallucination [None]
  - Fall [None]

NARRATIVE: CASE EVENT DATE: 20160715
